FAERS Safety Report 10732489 (Version 1)
Quarter: 2015Q1

REPORT INFORMATION
  Report Type: Spontaneous
  Country: JP (occurrence: None)
  Receive Date: 20150120
  Receipt Date: 20150120
  Transmission Date: 20150721
  Serious: Yes (Other)
  Sender: FDA-Public Use
  Company Number: INT_00648_2015

PATIENT
  Age: 63 Year
  Sex: Male

DRUGS (2)
  1. CARBOPLATIN (CARBOPLATIN) [Suspect]
     Active Substance: CARBOPLATIN
     Indication: LUNG NEOPLASM MALIGNANT
     Dosage: AREA UNDER THE CURVE (AUC) = 3, (DAYS 1, 8))
  2. PACLITAXEL (PACLITAXEL) (HQ SPECIALTY) [Suspect]
     Active Substance: PACLITAXEL
     Indication: LUNG NEOPLASM MALIGNANT
     Dosage: DAYS 1, 8) FOR 2 CYCLES)

REACTIONS (1)
  - Sarcoidosis [None]
